FAERS Safety Report 10309734 (Version 1)
Quarter: 2014Q3

REPORT INFORMATION
  Report Type: Spontaneous
  Country: US (occurrence: US)
  Receive Date: 20140717
  Receipt Date: 20140717
  Transmission Date: 20150326
  Serious: No
  Sender: FDA-Public Use
  Company Number: US-BIOGENIDEC-2013BI095746

PATIENT
  Sex: Female

DRUGS (1)
  1. AVONEX [Suspect]
     Active Substance: INTERFERON BETA-1A
     Indication: MULTIPLE SCLEROSIS
     Route: 030
     Dates: start: 20090810, end: 20090910

REACTIONS (5)
  - Depression [Recovered/Resolved]
  - Influenza like illness [Unknown]
  - Lipoatrophy [Unknown]
  - Suicidal ideation [Recovered/Resolved]
  - Malaise [Unknown]
